FAERS Safety Report 8558098-5 (Version None)
Quarter: 2012Q3

REPORT INFORMATION
  Report Type: 
  Country: None (occurrence: None)
  Receive Date: 20120801
  Receipt Date: 20120724
  Transmission Date: 20120928
  Serious: Yes (Other)
  Sender: FDA-Public Use
  Company Number: US-ACTELION-A-US2012-69275

PATIENT
  Age: 71 Year
  Sex: Female

DRUGS (2)
  1. PLAVIX [Concomitant]
  2. TRACLEER [Suspect]
     Indication: PULMONARY ARTERIAL HYPERTENSION
     Dosage: UNK
     Route: 048

REACTIONS (2)
  - STENT PLACEMENT [None]
  - OSTEOARTHRITIS [None]
